FAERS Safety Report 24322872 (Version 1)
Quarter: 2024Q3

REPORT INFORMATION
  Report Type: Report from Study
  Country: KE (occurrence: KE)
  Receive Date: 20240916
  Receipt Date: 20240916
  Transmission Date: 20241017
  Serious: Yes (Death, Other)
  Sender: PFIZER
  Company Number: KE-TAKEDA-2024TUS013389

PATIENT
  Age: 36 Year
  Sex: Male

DRUGS (1)
  1. BRENTUXIMAB VEDOTIN [Suspect]
     Active Substance: BRENTUXIMAB VEDOTIN
     Indication: Cutaneous T-cell lymphoma
     Dosage: 100 MILLIGRAM, Q3WEEKS
     Route: 042
     Dates: start: 20231116

REACTIONS (4)
  - Death [Fatal]
  - Oropharyngeal pain [Unknown]
  - Acne [Unknown]
  - Inappropriate schedule of product administration [Unknown]
